FAERS Safety Report 17362136 (Version 4)
Quarter: 2020Q3

REPORT INFORMATION
  Report Type: Spontaneous
  Country: US (occurrence: US)
  Receive Date: 20200203
  Receipt Date: 20200914
  Transmission Date: 20201102
  Serious: No
  Sender: FDA-Public Use
  Company Number: US-BIOGEN-2020BI00834524

PATIENT
  Sex: Female

DRUGS (1)
  1. PLEGRIDY [Suspect]
     Active Substance: PEGINTERFERON BETA-1A
     Indication: MULTIPLE SCLEROSIS
     Route: 058
     Dates: start: 20190109

REACTIONS (6)
  - Nervousness [Unknown]
  - Fear [Unknown]
  - Autoimmune thyroiditis [Unknown]
  - Multiple sclerosis [Unknown]
  - Anxiety [Unknown]
  - Drug delivery system malfunction [Unknown]
